FAERS Safety Report 4614771-2 (Version None)
Quarter: 2005Q1

REPORT INFORMATION
  Report Type: 
  Country: None (occurrence: None)
  Receive Date: 20050322
  Receipt Date: 20050310
  Transmission Date: 20050727
  Serious: Yes (Other)
  Sender: FDA-Public Use
  Company Number: NL-BRISTOL-MYERS SQUIBB COMPANY-12893418

PATIENT
  Age: 69 Year
  Sex: Female

DRUGS (4)
  1. SELEKTINE [Suspect]
     Dates: start: 20040701, end: 20050201
  2. ARTHROTEC [Concomitant]
  3. LOSEC [Concomitant]
  4. NOOTROPIL [Concomitant]

REACTIONS (2)
  - DIFFICULTY IN WALKING [None]
  - MYALGIA [None]
